APPROVED DRUG PRODUCT: ENTECAVIR
Active Ingredient: ENTECAVIR
Strength: 1MG
Dosage Form/Route: TABLET;ORAL
Application: A208782 | Product #002
Applicant: PRINSTON PHARMACEUTICAL INC
Approved: Oct 10, 2017 | RLD: No | RS: No | Type: DISCN